FAERS Safety Report 5116701-6 (Version None)
Quarter: 2006Q3

REPORT INFORMATION
  Report Type: 
  Country: None (occurrence: None)
  Receive Date: 20060928
  Receipt Date: 20060913
  Transmission Date: 20061208
  Serious: Yes (Life-Threatening, Hospitalization)
  Sender: FDA-Public Use
  Company Number: GB-ROCHE-462963

PATIENT
  Age: 54 Year
  Sex: Female
  Weight: 69.5 kg

DRUGS (2)
  1. CAPECITABINE [Suspect]
     Indication: BREAST CANCER
     Dosage: GIVEN DAYS 1-14 EVERY 3 WEEKS FOR 4 CYCLES DOSE AND FREQUENCY AS PER PROTOCOL
     Route: 065
     Dates: start: 20060907, end: 20060910
  2. EPIRUBICIN [Suspect]
     Indication: BREAST CANCER
     Dosage: DOSE UNKNOWN, FOR 4 CYCLES
     Route: 065
     Dates: start: 20060615

REACTIONS (2)
  - MYOCARDIAL INFARCTION [None]
  - TROPONIN INCREASED [None]
